FAERS Safety Report 4510080-0 (Version None)
Quarter: 2004Q4

REPORT INFORMATION
  Report Type: 
  Country: None (occurrence: None)
  Receive Date: 20041119
  Receipt Date: 20041028
  Transmission Date: 20050328
  Serious: Yes (Hospitalization, Other)
  Sender: FDA-Public Use
  Company Number: DE_041014584

PATIENT
  Age: 45 Year
  Sex: Male

DRUGS (4)
  1. HUMALOG [Suspect]
     Indication: DIABETES MELLITUS
     Dosage: 40 IU DAY
  2. CAPTOPRIL [Concomitant]
  3. LANTUS [Concomitant]
  4. TRAMADON (TRAMADOL HYDROCHLORIDE) [Concomitant]

REACTIONS (8)
  - BLOOD PRESSURE INCREASED [None]
  - CIRCULATORY COLLAPSE [None]
  - CONVULSION [None]
  - FALL [None]
  - HEART RATE INCREASED [None]
  - HYPOGLYCAEMIA [None]
  - JOINT DISLOCATION [None]
  - UPPER LIMB FRACTURE [None]
